FAERS Safety Report 25528892 (Version 1)
Quarter: 2025Q3

REPORT INFORMATION
  Report Type: Spontaneous
  Country: US (occurrence: None)
  Receive Date: 20250707
  Receipt Date: 20250707
  Transmission Date: 20251020
  Serious: Yes (Hospitalization)
  Sender: FDA-CTU
  Company Number: None

PATIENT
  Age: 69 Year
  Sex: Male

DRUGS (12)
  1. TACROLIMUS [Suspect]
     Active Substance: TACROLIMUS
     Indication: Heart transplant
     Dosage: 4 MG TWICE A DAY ORAL ?
     Route: 048
  2. MYCOPHENOLIC ACID [Suspect]
     Active Substance: MYCOPHENOLIC ACID
     Indication: Heart transplant
     Dosage: 720 MG TWICE A DAY ORAL ?
     Route: 048
  3. FERROUS SULFATE [Concomitant]
     Active Substance: FERROUS SULFATE
  4. Vit B-12 [Concomitant]
  5. ESOMEPRAZOLE [Concomitant]
     Active Substance: ESOMEPRAZOLE
  6. ASPIRIN [Concomitant]
     Active Substance: ASPIRIN
  7. Mag-Oxide 400mg [Concomitant]
  8. Calcium 200mg [Concomitant]
  9. TACROLIMUS [Concomitant]
     Active Substance: TACROLIMUS
  10. Zinc Sulfate 220mg [Concomitant]
  11. AZATHIOPRINE [Concomitant]
     Active Substance: AZATHIOPRINE
  12. FOLIC ACID [Concomitant]
     Active Substance: FOLIC ACID

REACTIONS (4)
  - Chest pain [None]
  - Dyspnoea [None]
  - Pulmonary embolism [None]
  - Renal disorder [None]

NARRATIVE: CASE EVENT DATE: 20250614
